FAERS Safety Report 15939505 (Version 1)
Quarter: 2019Q1

REPORT INFORMATION
  Report Type: Spontaneous
  Country: None (occurrence: US)
  Receive Date: 20190208
  Receipt Date: 20190208
  Transmission Date: 20190417
  Serious: No
  Sender: FDA-Public Use
  Company Number: NXG-15-018

PATIENT
  Age: 27 Year
  Sex: Female

DRUGS (4)
  1. CHENODAL [Suspect]
     Active Substance: CHENODIOL
     Route: 048
  2. ANTI-INFLAMMATORY [Concomitant]
     Active Substance: UNSPECIFIED INGREDIENT
  3. MUSCLE RELAXER [Concomitant]
     Active Substance: UNSPECIFIED INGREDIENT
  4. BLOOD PRESSURE MEDICATION [Concomitant]
     Active Substance: UNSPECIFIED INGREDIENT

REACTIONS (1)
  - Depression [Unknown]
